FAERS Safety Report 5416842-X (Version None)
Quarter: 2007Q3

REPORT INFORMATION
  Report Type: 
  Country: None (occurrence: None)
  Receive Date: 20070815
  Receipt Date: 20070815
  Transmission Date: 20080115
  Serious: Yes (Hospitalization)
  Sender: FDA-Public Use
  Company Number: None

PATIENT
  Sex: Male
  Weight: 83.18 kg

DRUGS (2)
  1. FLUOROURACIL [Suspect]
     Dosage: 7120 MG
  2. MITOMYCIN-C BULK POWDER [Suspect]
     Dosage: 17 MG

REACTIONS (7)
  - CYSTITIS HAEMORRHAGIC [None]
  - DEHYDRATION [None]
  - DRUG TOXICITY [None]
  - DYSURIA [None]
  - OBSTRUCTIVE UROPATHY [None]
  - PROCTALGIA [None]
  - RENAL FAILURE ACUTE [None]
